FAERS Safety Report 7515088-9 (Version None)
Quarter: 2011Q2

REPORT INFORMATION
  Report Type: 
  Country: None (occurrence: None)
  Receive Date: 20110425
  Receipt Date: 20100823
  Transmission Date: 20111010
  Serious: Yes (Other)
  Sender: FDA-Public Use
  Company Number: MC201000223

PATIENT
  Sex: Male

DRUGS (1)
  1. ANGIOMAX [Suspect]
     Indication: PERCUTANEOUS CORONARY INTERVENTION

REACTIONS (4)
  - THROMBOSIS [None]
  - COAGULATION TIME ABNORMAL [None]
  - UNDERDOSE [None]
  - DRUG ADMINISTRATION ERROR [None]
